FAERS Safety Report 8911852 (Version 1)
Quarter: 2012Q4

REPORT INFORMATION
  Report Type: 
  Country: JP (occurrence: JP)
  Receive Date: 20121115
  Receipt Date: 20121115
  Transmission Date: 20130627
  Serious: Yes (Other)
  Sender: FDA-Public Use
  Company Number: JP-GLAXOSMITHKLINE-B0838302A

PATIENT
  Age: 35 Year
  Sex: Female
  Weight: 37 kg

DRUGS (8)
  1. LAMICTAL [Suspect]
     Indication: EPILEPSY
     Dosage: 40MG Twice per day
     Route: 048
     Dates: start: 201005
  2. MYSTAN [Suspect]
     Indication: EPILEPSY
     Dosage: 3MG Twice per day
     Route: 048
     Dates: start: 200901
  3. CARBAMAZEPINE [Concomitant]
     Indication: EPILEPSY
     Route: 048
  4. ZONISAMIDE [Concomitant]
     Indication: EPILEPSY
     Route: 048
  5. PYRIDOXINE HYDROCHLORIDE [Concomitant]
     Indication: EPILEPSY
     Route: 065
  6. TOPINA [Concomitant]
     Indication: EPILEPSY
     Route: 048
     Dates: start: 200801, end: 201006
  7. DEPAKENE [Concomitant]
     Indication: EPILEPSY
     Dosage: 400MG Twice per day
     Route: 048
     Dates: start: 200710
  8. LANDSEN [Concomitant]
     Indication: EPILEPSY
     Dosage: 1.75MG Twice per day
     Route: 048
     Dates: start: 200707, end: 201107

REACTIONS (7)
  - Diet refusal [Not Recovered/Not Resolved]
  - Enteral nutrition [Unknown]
  - Hypervigilance [Unknown]
  - Affective disorder [Unknown]
  - Pyrexia [Unknown]
  - Weight increased [Unknown]
  - Respiratory depression [Recovering/Resolving]
